FAERS Safety Report 15701360 (Version 4)
Quarter: 2022Q4

REPORT INFORMATION
  Report Type: Report from Study
  Country: US (occurrence: US)
  Receive Date: 20181207
  Receipt Date: 20221228
  Transmission Date: 20230113
  Serious: Yes (Other)
  Sender: FDA-Public Use
  Company Number: US-JAZZ-JPI-P-021759

PATIENT
  Sex: Female
  Weight: 53 kg

DRUGS (31)
  1. XYREM [Suspect]
     Active Substance: SODIUM OXYBATE
     Indication: Narcolepsy
     Dosage: 2.25 G, BID
     Route: 048
     Dates: start: 20120525, end: 20120531
  2. XYREM [Suspect]
     Active Substance: SODIUM OXYBATE
     Indication: Cataplexy
     Dosage: 3 G, BID
     Route: 048
     Dates: start: 20120601, end: 20120603
  3. XYREM [Suspect]
     Active Substance: SODIUM OXYBATE
     Indication: Somnolence
     Dosage: 3 G, QD
     Route: 048
     Dates: start: 20120604, end: 20120604
  4. XYREM [Suspect]
     Active Substance: SODIUM OXYBATE
     Dosage: 2.25 G, BID
     Route: 048
     Dates: start: 20120605, end: 20120610
  5. XYREM [Suspect]
     Active Substance: SODIUM OXYBATE
     Dosage: 3 G, BID
     Route: 048
     Dates: start: 20120611, end: 201206
  6. XYREM [Suspect]
     Active Substance: SODIUM OXYBATE
     Dosage: 2.25 G, BID
     Route: 048
     Dates: start: 201206, end: 2012
  7. XYREM [Suspect]
     Active Substance: SODIUM OXYBATE
     Dosage: 3 G, BID
     Route: 048
     Dates: start: 2012, end: 2012
  8. XYREM [Suspect]
     Active Substance: SODIUM OXYBATE
     Dosage: 3 GM FIRST DOSE
     Route: 048
     Dates: start: 2012, end: 20120713
  9. XYREM [Suspect]
     Active Substance: SODIUM OXYBATE
     Dosage: 2.5 GM SECOND DOSE
     Route: 048
     Dates: start: 2012, end: 20120713
  10. XYREM [Suspect]
     Active Substance: SODIUM OXYBATE
     Dosage: 2.25 G, BID
     Route: 048
     Dates: start: 20120924
  11. XYREM [Suspect]
     Active Substance: SODIUM OXYBATE
     Dosage: 3.75 G, BID
     Route: 048
     Dates: start: 201302, end: 201309
  12. ZONISAMIDE [Suspect]
     Active Substance: ZONISAMIDE
     Indication: Venous occlusion
     Dosage: 100 MG, QD
     Route: 048
     Dates: start: 20120507
  13. ZONISAMIDE [Suspect]
     Active Substance: ZONISAMIDE
     Dosage: 100 MG, BID
     Route: 048
     Dates: start: 20120518, end: 20120610
  14. ZONISAMIDE [Suspect]
     Active Substance: ZONISAMIDE
     Dosage: 100 MG, QD
     Route: 048
     Dates: start: 20120507
  15. ZONISAMIDE [Suspect]
     Active Substance: ZONISAMIDE
     Dosage: 100 MG, BID
     Route: 048
     Dates: start: 20120518, end: 20120610
  16. ADDERALL [Concomitant]
     Active Substance: AMPHETAMINE ASPARTATE\AMPHETAMINE SULFATE\DEXTROAMPHETAMINE SACCHARATE\DEXTROAMPHETAMINE SULFATE
     Indication: Product used for unknown indication
     Dosage: UNK
  17. LEVOTHYROXINE [Concomitant]
     Active Substance: LEVOTHYROXINE
     Indication: Hypothyroidism
     Dosage: UNK
     Dates: start: 20160816
  18. HYDROCORTISONE [Concomitant]
     Active Substance: HYDROCORTISONE
     Indication: Product used for unknown indication
     Dosage: UNK
  19. WARFARIN SODIUM [Concomitant]
     Active Substance: WARFARIN SODIUM
     Indication: Venous thrombosis
     Dosage: UNK
  20. AMPHETAMINE [Concomitant]
     Active Substance: AMPHETAMINE
     Indication: Product used for unknown indication
     Dosage: UNK
  21. HYDROCODONE [Concomitant]
     Active Substance: HYDROCODONE
     Indication: Venous pressure
     Dosage: UNK
  22. ATORVASTATIN CALCIUM [Concomitant]
     Active Substance: ATORVASTATIN CALCIUM
     Indication: Blood cholesterol increased
     Dosage: UNK
  23. NITROGLYCERIN [Concomitant]
     Active Substance: NITROGLYCERIN
     Indication: Myocardial infarction
     Dosage: UNK
     Dates: start: 20151130
  24. ALBUTEROL SULFATE [Concomitant]
     Active Substance: ALBUTEROL SULFATE
     Indication: Asthma
     Dosage: UNK
  25. ALBUTEROL SULFATE [Concomitant]
     Active Substance: ALBUTEROL SULFATE
     Indication: Pulmonary fibrosis
  26. TRIAMCINOLONE [Concomitant]
     Active Substance: TRIAMCINOLONE
     Indication: Sinus disorder
     Dosage: UNK
  27. PROAIR HFA [Concomitant]
     Active Substance: ALBUTEROL SULFATE
     Indication: Product used for unknown indication
     Dosage: UNK
     Dates: start: 20151130
  28. FLONASE ALLERGY RELIEF [Concomitant]
     Active Substance: FLUTICASONE PROPIONATE
     Indication: Product used for unknown indication
     Dosage: UNK
     Dates: start: 20151130
  29. VALACYCLOVIR HYDROCHLORIDE [Concomitant]
     Active Substance: VALACYCLOVIR HYDROCHLORIDE
     Indication: Product used for unknown indication
     Dosage: UNK
     Dates: start: 20151130
  30. MELATONIN [Concomitant]
     Active Substance: MELATONIN
     Indication: Product used for unknown indication
     Dosage: UNK
     Dates: start: 20151130
  31. IBUPROFEN [Concomitant]
     Active Substance: IBUPROFEN
     Indication: Product used for unknown indication
     Dosage: A4
     Dates: start: 20151130

REACTIONS (48)
  - Exophthalmos [Recovering/Resolving]
  - Eye haemorrhage [Not Recovered/Not Resolved]
  - Weight decreased [Recovered/Resolved]
  - Skin tightness [Unknown]
  - Snoring [Unknown]
  - Mononucleosis syndrome [Unknown]
  - Poor peripheral circulation [Unknown]
  - Skin discolouration [Not Recovered/Not Resolved]
  - Hypotonia [Unknown]
  - Cyanosis [Unknown]
  - Cholelithiasis [Unknown]
  - Screaming [Recovered/Resolved]
  - Rash pruritic [Unknown]
  - Gastrointestinal pain [Unknown]
  - Eye contusion [Not Recovered/Not Resolved]
  - Breast atrophy [Not Recovered/Not Resolved]
  - Product taste abnormal [Unknown]
  - Dysgeusia [Unknown]
  - Muscle tightness [Unknown]
  - Contusion [Unknown]
  - Condition aggravated [Unknown]
  - Dysphagia [Unknown]
  - Gait disturbance [Unknown]
  - Musculoskeletal chest pain [Unknown]
  - Feeling cold [Recovered/Resolved]
  - Back pain [Not Recovered/Not Resolved]
  - Hypoaesthesia [Not Recovered/Not Resolved]
  - Rash [Not Recovered/Not Resolved]
  - Feeling abnormal [Unknown]
  - Muscular weakness [Unknown]
  - Pain in extremity [Unknown]
  - Condition aggravated [Unknown]
  - Muscle spasms [Recovered/Resolved]
  - Condition aggravated [Recovered/Resolved]
  - Paraesthesia [Unknown]
  - Tremor [Unknown]
  - Dizziness [Unknown]
  - Condition aggravated [Unknown]
  - Dry mouth [Unknown]
  - Headache [Not Recovered/Not Resolved]
  - Abdominal pain upper [Not Recovered/Not Resolved]
  - Fatigue [Unknown]
  - Irritability [Unknown]
  - Somnolence [Unknown]
  - Decreased appetite [Unknown]
  - Nausea [Unknown]
  - Drug ineffective [Unknown]
  - Product preparation error [Unknown]

NARRATIVE: CASE EVENT DATE: 20120101
